FAERS Safety Report 20354814 (Version 2)
Quarter: 2022Q1

REPORT INFORMATION
  Report Type: Spontaneous
  Country: TR (occurrence: TR)
  Receive Date: 20220120
  Receipt Date: 20220224
  Transmission Date: 20220423
  Serious: Yes (Other)
  Sender: FDA-Public Use
  Company Number: TR-002147023-NVSC2022TR008424

PATIENT
  Age: 30 Year
  Sex: Male

DRUGS (3)
  1. XOLAIR [Suspect]
     Active Substance: OMALIZUMAB
     Indication: Chronic spontaneous urticaria
     Route: 058
  2. XOLAIR [Suspect]
     Active Substance: OMALIZUMAB
     Route: 058
  3. XOLAIR [Suspect]
     Active Substance: OMALIZUMAB
     Route: 058

REACTIONS (9)
  - Drug dependence [Not Recovered/Not Resolved]
  - Fibromyalgia [Unknown]
  - Erythema [Unknown]
  - Dyspnoea [Unknown]
  - Urticaria [Unknown]
  - Mental disorder [Unknown]
  - Quality of life decreased [Unknown]
  - Product supply issue [Unknown]
  - Extra dose administered [Unknown]
